FAERS Safety Report 4468439-6 (Version None)
Quarter: 2004Q4

REPORT INFORMATION
  Report Type: 
  Country: None (occurrence: None)
  Receive Date: 20041007
  Receipt Date: 20040928
  Transmission Date: 20050328
  Serious: Yes (Other)
  Sender: FDA-Public Use
  Company Number: PHBS2004JP13079

PATIENT

DRUGS (2)
  1. ZADITEN [Suspect]
     Route: 045
  2. ZADITEN [Suspect]
     Route: 048

REACTIONS (1)
  - LIVER DISORDER [None]
